FAERS Safety Report 11836247 (Version 3)
Quarter: 2016Q1

REPORT INFORMATION
  Report Type: Spontaneous
  Country: BR (occurrence: BR)
  Receive Date: 20151215
  Receipt Date: 20160323
  Transmission Date: 20160525
  Serious: Yes (Hospitalization, Other)
  Sender: FDA-Public Use
  Company Number: BR-PFIZER INC-2015298255

PATIENT
  Age: 63 Year
  Sex: Male
  Weight: 54 kg

DRUGS (5)
  1. SUTENT [Suspect]
     Active Substance: SUNITINIB MALATE
     Indication: METASTATIC RENAL CELL CARCINOMA
     Dosage: 50 MG, CYCLIC, 4 X 4
     Route: 048
     Dates: start: 20150731, end: 201512
  2. DIMORF [Concomitant]
     Active Substance: MORPHINE SULFATE
     Indication: PAIN
     Dosage: UNK
  3. MORPHINE [Concomitant]
     Active Substance: MORPHINE
     Dosage: UNK
  4. DIPIRONE [Concomitant]
     Active Substance: METAMIZOLE SODIUM
     Dosage: UNK
  5. VOLTAREN [Concomitant]
     Active Substance: DICLOFENAC SODIUM
     Indication: PAIN
     Dosage: UNK

REACTIONS (9)
  - Vision blurred [Not Recovered/Not Resolved]
  - Spinal disorder [Not Recovered/Not Resolved]
  - Vomiting [Recovering/Resolving]
  - Dizziness [Unknown]
  - Muscle atrophy [Not Recovered/Not Resolved]
  - Gastritis [Recovering/Resolving]
  - Aphthous ulcer [Recovering/Resolving]
  - Hyperthyroidism [Recovering/Resolving]
  - Dry eye [Not Recovered/Not Resolved]

NARRATIVE: CASE EVENT DATE: 2015
